FAERS Safety Report 9846228 (Version 1)
Quarter: 2013Q4

REPORT INFORMATION
  Report Type: Spontaneous
  Country: US (occurrence: None)
  Receive Date: 20131224
  Receipt Date: 20131224
  Transmission Date: 20140711
  Serious: Yes (Other)
  Sender: FDA-Public Use
  Company Number: PHEH2013US020375

PATIENT
  Age: 63 Year
  Sex: Male

DRUGS (2)
  1. GILENYA (FINGOLIMOD) UNKNOWN [Suspect]
     Indication: MULTIPLE SCLEROSIS
     Route: 048
  2. AMPYRA [Suspect]
     Indication: MULTIPLE SCLEROSIS

REACTIONS (1)
  - Gait disturbance [None]
